FAERS Safety Report 20126735 (Version 5)
Quarter: 2022Q3

REPORT INFORMATION
  Report Type: Report from Study
  Country: FR (occurrence: FR)
  Receive Date: 20211129
  Receipt Date: 20220722
  Transmission Date: 20221027
  Serious: No
  Sender: FDA-Public Use
  Company Number: FR-TAKEDA-2021TUS075660

PATIENT
  Age: 51 Year
  Sex: Female

DRUGS (14)
  1. TEDUGLUTIDE [Suspect]
     Active Substance: TEDUGLUTIDE
     Indication: Short-bowel syndrome
     Dosage: 2.4 MILLIGRAM, 1/WEEK
     Route: 042
     Dates: start: 20170221
  2. TEDUGLUTIDE [Suspect]
     Active Substance: TEDUGLUTIDE
     Indication: Short-bowel syndrome
     Dosage: 2.4 MILLIGRAM, 1/WEEK
     Route: 042
     Dates: start: 20170221
  3. TEDUGLUTIDE [Suspect]
     Active Substance: TEDUGLUTIDE
     Indication: Short-bowel syndrome
     Dosage: 2.4 MILLIGRAM, 1/WEEK
     Route: 042
     Dates: start: 20170221
  4. TEDUGLUTIDE [Suspect]
     Active Substance: TEDUGLUTIDE
     Indication: Short-bowel syndrome
     Dosage: 2.4 MILLIGRAM, 1/WEEK
     Route: 042
     Dates: start: 20170221
  5. Gavisconell [Concomitant]
     Indication: Dyspepsia
     Dosage: 10 MILLILITER
     Route: 048
     Dates: start: 201909, end: 202002
  6. BROMAZEPAM [Concomitant]
     Active Substance: BROMAZEPAM
     Indication: Depression
     Dosage: 1.50 MILLIGRAM, TID
     Route: 048
     Dates: start: 20160521
  7. VITAMIN C [Concomitant]
     Active Substance: ASCORBIC ACID
     Indication: Asthenia
     Dosage: 500 MILLIGRAM, BID
     Route: 048
     Dates: start: 20160819
  8. INNOHEP [Concomitant]
     Active Substance: TINZAPARIN SODIUM
     Indication: Thrombosis prophylaxis
     Dosage: 4500 INTERNATIONAL UNIT, QD
     Route: 058
     Dates: start: 201502
  9. VITAMIN K [Concomitant]
     Active Substance: PHYTONADIONE
     Indication: Vitamin supplementation
     Dosage: 10 MILLIGRAM, 1/WEEK
     Route: 065
  10. TAUROLIDINE [Concomitant]
     Active Substance: TAUROLIDINE
     Indication: Infection prophylaxis
     Dosage: 2 MILLILITER
     Route: 065
  11. PHLOROGLUCINOL [Concomitant]
     Active Substance: PHLOROGLUCINOL
     Indication: Pain prophylaxis
     Dosage: 40 MILLIGRAM, BID
     Route: 042
     Dates: start: 20160801
  12. CHOLECALCIFEROL [Concomitant]
     Active Substance: CHOLECALCIFEROL
     Indication: Vitamin supplementation
     Dosage: 1000000 INTERNATIONAL UNIT, MONTHLY
     Route: 065
  13. TRANXENE [Concomitant]
     Active Substance: CLORAZEPATE DIPOTASSIUM
     Indication: Depression
     Dosage: 10 MILLIGRAM, BID
     Route: 042
     Dates: start: 20160218
  14. INIPOMP [Concomitant]
     Active Substance: PANTOPRAZOLE SODIUM
     Indication: Malabsorption
     Dosage: UNK UNK, QD
     Route: 042

REACTIONS (1)
  - Benign breast neoplasm [Recovered/Resolved with Sequelae]

NARRATIVE: CASE EVENT DATE: 20210101
